FAERS Safety Report 7145784-7 (Version None)
Quarter: 2010Q4

REPORT INFORMATION
  Report Type: 
  Country: None (occurrence: None)
  Receive Date: 20101208
  Receipt Date: 20101202
  Transmission Date: 20110411
  Serious: Yes (Death)
  Sender: FDA-Public Use
  Company Number: A0877372A

PATIENT
  Sex: Female

DRUGS (3)
  1. ADVAIR DISKUS 100/50 [Suspect]
  2. VENTOLIN [Suspect]
  3. TOPAMAX [Concomitant]

REACTIONS (1)
  - NEOPLASM MALIGNANT [None]
